FAERS Safety Report 8976976 (Version 1)
Quarter: 2012Q4

REPORT INFORMATION
  Report Type: 
  Country: US (occurrence: US)
  Receive Date: 20121220
  Receipt Date: 20121220
  Transmission Date: 20130627
  Serious: No
  Sender: FDA-Public Use
  Company Number: US-GLAXOSMITHKLINE-A0965882A

PATIENT
  Age: 64 Year
  Sex: Female
  Weight: 136.4 kg

DRUGS (2)
  1. SORIATANE [Suspect]
     Indication: PSORIASIS
     Dosage: 25MG Unknown
     Route: 048
     Dates: start: 20120204
  2. ENBREL [Concomitant]
     Indication: PSORIASIS
     Route: 058
     Dates: start: 20111025

REACTIONS (1)
  - Epistaxis [Recovering/Resolving]
